FAERS Safety Report 9290445 (Version 1)
Quarter: 2012Q4

REPORT INFORMATION
  Report Type: Spontaneous
  Country: US (occurrence: None)
  Receive Date: 20121004
  Receipt Date: 20121004
  Transmission Date: 20130627
  Serious: Yes (Hospitalization)
  Sender: FDA-Public Use
  Company Number: CLCY20120139

PATIENT
  Age: 74 Year
  Sex: Female

DRUGS (5)
  1. COLCRYS 0.6 MG [Suspect]
     Indication: GOUT
     Route: 048
     Dates: start: 20110325, end: 20110326
  2. COLCRYS 0.6 MG [Suspect]
     Indication: GOUT
     Route: 048
  3. COLCRYS 0.6 MG [Suspect]
     Indication: GOUT
     Route: 048
  4. ENAPRIL [Concomitant]
  5. METOLAZONE [Concomitant]

REACTIONS (20)
  - Overdose [None]
  - Drug dispensing error [None]
  - Palpitations [None]
  - Diarrhoea [None]
  - Faecal incontinence [None]
  - Rash [None]
  - Excoriation [None]
  - Ageusia [None]
  - Dry mouth [None]
  - Dyspnoea [None]
  - Diplopia [None]
  - Fluid overload [None]
  - Off label use [None]
  - Polyneuropathy [None]
  - Gait disturbance [None]
  - Back pain [None]
  - Arthralgia [None]
  - Scab [None]
  - Gastrointestinal disorder [None]
  - Inappropriate schedule of drug administration [None]
